FAERS Safety Report 11866798 (Version 1)
Quarter: 2015Q4

REPORT INFORMATION
  Report Type: Report from Study
  Country: CA (occurrence: CA)
  Receive Date: 20151224
  Receipt Date: 20151224
  Transmission Date: 20160305
  Serious: Yes (Other)
  Sender: FDA-Public Use
  Company Number: CA-AMGEN-CANSL2015135990

PATIENT
  Age: 48 Year
  Sex: Male

DRUGS (4)
  1. FOLIC ACID. [Concomitant]
     Active Substance: FOLIC ACID
     Dosage: UNK
  2. TIAZAC [Concomitant]
     Active Substance: DILTIAZEM HYDROCHLORIDE
     Dosage: UNK
  3. METHOTREXATE (METHOTREXATE SODIUM) [Concomitant]
     Active Substance: METHOTREXATE SODIUM
  4. ENBREL [Suspect]
     Active Substance: ETANERCEPT
     Indication: PSORIATIC ARTHROPATHY
     Dosage: 50 MG, UNK
     Route: 065
     Dates: start: 20150824, end: 20151214

REACTIONS (9)
  - Dyspnoea [Unknown]
  - Back pain [Unknown]
  - Continuous positive airway pressure [Unknown]
  - Abdominal pain [Unknown]
  - Dysuria [Unknown]
  - Decreased appetite [Unknown]
  - Hypertension [Unknown]
  - Abdominal distension [Unknown]
  - Dyspepsia [Unknown]

NARRATIVE: CASE EVENT DATE: 2015
